FAERS Safety Report 13543971 (Version 1)
Quarter: 2017Q2

REPORT INFORMATION
  Report Type: Spontaneous
  Country: US (occurrence: US)
  Receive Date: 20170515
  Receipt Date: 20170515
  Transmission Date: 20170830
  Serious: Yes (Other)
  Sender: FDA-Public Use
  Company Number: US-ORPHAN EUROPE-2020720

PATIENT
  Sex: Male
  Weight: 19.2 kg

DRUGS (11)
  1. INDOMETHACIN. [Concomitant]
     Active Substance: INDOMETHACIN
  2. CARBAGLU [Suspect]
     Active Substance: CARGLUMIC ACID
     Indication: HYPERAMMONAEMIA
     Route: 048
     Dates: start: 201603, end: 20160602
  3. LEVOCARNITINE. [Concomitant]
     Active Substance: LEVOCARNITINE
  4. VALINE [Concomitant]
     Active Substance: VALINE
     Route: 050
  5. CULTURELLE [Concomitant]
     Active Substance: LACTOBACILLUS RHAMNOSUS
  6. RANITIDINE. [Concomitant]
     Active Substance: RANITIDINE
  7. CYPROHEPTADINE. [Concomitant]
     Active Substance: CYPROHEPTADINE
  8. BIOTIN [Concomitant]
     Active Substance: BIOTIN
  9. FERROUS SULFATE. [Concomitant]
     Active Substance: FERROUS SULFATE
  10. POLY-VI-SOL [Concomitant]
     Active Substance: VITAMINS
  11. MIRALAX [Concomitant]
     Active Substance: POLYETHYLENE GLYCOL 3350

REACTIONS (2)
  - Aspartate aminotransferase increased [Recovered/Resolved]
  - Alanine aminotransferase increased [Recovered/Resolved]
